FAERS Safety Report 6585319-0 (Version None)
Quarter: 2010Q1

REPORT INFORMATION
  Report Type: 
  Country: None (occurrence: None)
  Receive Date: 20100217
  Receipt Date: 20100203
  Transmission Date: 20100710
  Serious: Yes (Hospitalization)
  Sender: FDA-Public Use
  Company Number: IT-EISAI INC.-E3810-03392-SPO-IT

PATIENT
  Sex: Female

DRUGS (6)
  1. PARIET (RABEPRAZOLE) [Suspect]
     Indication: PROPHYLAXIS
     Route: 048
     Dates: start: 20090822, end: 20090906
  2. ENALAPRIL MALEATE [Suspect]
     Indication: CARDIAC FAILURE
     Route: 048
     Dates: start: 20090823
  3. CLEXANE [Suspect]
     Indication: CARDIAC FAILURE
     Dates: start: 20090826
  4. LASIX [Suspect]
     Route: 048
  5. HUMALOG [Suspect]
     Indication: TYPE 2 DIABETES MELLITUS
     Dosage: 1 DOSE
     Route: 058
     Dates: start: 20090831
  6. METOPROLOL TARTRATE [Concomitant]
     Indication: CARDIAC FAILURE
     Route: 048

REACTIONS (2)
  - PRURITUS [None]
  - RASH [None]
